FAERS Safety Report 14366577 (Version 1)
Quarter: 2018Q1

REPORT INFORMATION
  Report Type: Spontaneous
  Country: GB (occurrence: GB)
  Receive Date: 20180109
  Receipt Date: 20180109
  Transmission Date: 20180509
  Serious: Yes (Hospitalization)
  Sender: FDA-Public Use
  Company Number: GB-SA-2017SA269099

PATIENT
  Age: 17 Month
  Sex: Male

DRUGS (1)
  1. MYOZYME [Suspect]
     Active Substance: ALGLUCOSIDASE ALFA
     Route: 041

REACTIONS (10)
  - Rhinovirus infection [Recovered/Resolved]
  - Increased bronchial secretion [Recovered/Resolved]
  - Poor quality sleep [Unknown]
  - Cough [Recovered/Resolved]
  - Tachycardia [Recovered/Resolved]
  - Fatigue [Unknown]
  - Oxygen saturation decreased [Recovered/Resolved]
  - Dysphonia [Unknown]
  - Body temperature increased [Not Recovered/Not Resolved]
  - Product use issue [Unknown]

NARRATIVE: CASE EVENT DATE: 20171226
